FAERS Safety Report 11215260 (Version 1)
Quarter: 2015Q2

REPORT INFORMATION
  Report Type: Spontaneous
  Country: US (occurrence: US)
  Receive Date: 20150624
  Receipt Date: 20150624
  Transmission Date: 20150821
  Serious: Yes (Other)
  Sender: FDA-Public Use
  Company Number: US-PFIZER INC-2015205486

PATIENT
  Sex: Female

DRUGS (2)
  1. IBRANCE [Suspect]
     Active Substance: PALBOCICLIB
     Indication: BREAST CANCER METASTATIC
     Dosage: 21 DAYS ON, 7 DAYS OFF
  2. FEMARA [Concomitant]
     Active Substance: LETROZOLE

REACTIONS (5)
  - Blood count abnormal [Unknown]
  - Oral pain [Unknown]
  - Neutropenia [Unknown]
  - White blood cell count decreased [Unknown]
  - Fatigue [Unknown]
